FAERS Safety Report 15345440 (Version 1)
Quarter: 2018Q3

REPORT INFORMATION
  Report Type: Spontaneous
  Country: US (occurrence: US)
  Receive Date: 20180903
  Receipt Date: 20180903
  Transmission Date: 20181010
  Serious: No
  Sender: FDA-Public Use
  Company Number: US-SA-2018SA246317

PATIENT
  Sex: Female

DRUGS (3)
  1. REPATHA [Concomitant]
     Active Substance: EVOLOCUMAB
  2. ALIROCUMAB PREFILLED PEN [Suspect]
     Active Substance: ALIROCUMAB
     Route: 058
  3. PRALUENT [Suspect]
     Active Substance: ALIROCUMAB
     Route: 058

REACTIONS (2)
  - Condition aggravated [Recovering/Resolving]
  - Alopecia [Recovering/Resolving]
